FAERS Safety Report 9267498 (Version 1)
Quarter: 2013Q2

REPORT INFORMATION
  Report Type: Spontaneous
  Country: AR (occurrence: AR)
  Receive Date: 20130502
  Receipt Date: 20130502
  Transmission Date: 20140414
  Serious: Yes (Other)
  Sender: FDA-Public Use
  Company Number: AR-BRISTOL-MYERS SQUIBB COMPANY-18832782

PATIENT
  Sex: 0

DRUGS (2)
  1. ABATACEPT [Suspect]
  2. ACTEMRA [Suspect]
     Route: 042

REACTIONS (2)
  - Pruritus generalised [Not Recovered/Not Resolved]
  - Pyrexia [Not Recovered/Not Resolved]
